FAERS Safety Report 21345036 (Version 2)
Quarter: 2022Q3

REPORT INFORMATION
  Report Type: Spontaneous
  Country: GB (occurrence: None)
  Receive Date: 20220916
  Receipt Date: 20220927
  Transmission Date: 20221027
  Serious: Yes (Other)
  Sender: FDA-Public Use
  Company Number: 2022A312149

PATIENT
  Sex: Female

DRUGS (2)
  1. FASENRA [Suspect]
     Active Substance: BENRALIZUMAB
     Indication: Asthma
     Dosage: 30.0MG UNKNOWN
     Route: 058
  2. PREDNISOLONE [Concomitant]
     Active Substance: PREDNISOLONE
     Indication: Asthma
     Dosage: 40MG FOR 5 DAYS REDUCING BY 2 TABLETS EVERY 3 DAYS.
     Route: 065

REACTIONS (5)
  - Asthma [Unknown]
  - Peripheral swelling [Unknown]
  - Dysstasia [Unknown]
  - Gait disturbance [Unknown]
  - Pain in extremity [Unknown]
